FAERS Safety Report 9125826 (Version 1)
Quarter: 2013Q1

REPORT INFORMATION
  Report Type: Other
  Country: GB (occurrence: GB)
  Receive Date: 20130121
  Receipt Date: 20130121
  Transmission Date: 20140127
  Serious: Yes (Hospitalization)
  Sender: FDA-Public Use
  Company Number: GB-SHIRE-ALL1-2013-00286

PATIENT
  Sex: Male

DRUGS (4)
  1. MESALAZINE [Suspect]
     Indication: PRODUCT USED FOR UNKNOWN INDICATION
     Dosage: 2.4 G, 1X/DAY:QD
     Route: 048
     Dates: start: 201204, end: 201212
  2. MESALAZINE [Suspect]
     Dosage: 3.6 G (THREE 1.2 G), 1X/DAY:QD
  3. MESALAZINE [Suspect]
     Indication: PRODUCT USED FOR UNKNOWN INDICATION
     Dosage: 1200 MG (THREE 400 MG), 3X/DAY:TID
     Route: 048
     Dates: start: 20050514
  4. PRADAXA [Concomitant]
     Indication: PRODUCT USED FOR UNKNOWN INDICATION
     Dosage: 300 MG, 1X/DAY:QD
     Route: 065
     Dates: start: 20091001

REACTIONS (4)
  - Acute respiratory distress syndrome [Unknown]
  - Pneumonia [Unknown]
  - Abnormal loss of weight [Unknown]
  - Arthritis [Unknown]
